FAERS Safety Report 15740109 (Version 2)
Quarter: 2019Q1

REPORT INFORMATION
  Report Type: Spontaneous
  Country: US (occurrence: US)
  Receive Date: 20181219
  Receipt Date: 20190322
  Transmission Date: 20190417
  Serious: Yes (Other)
  Sender: FDA-Public Use
  Company Number: US-SA-2018SA342278

PATIENT
  Age: 66 Year
  Sex: Female
  Weight: 58.96 kg

DRUGS (5)
  1. TAXOTERE [Suspect]
     Active Substance: DOCETAXEL
     Dosage: 1 MG, QW
     Route: 042
     Dates: start: 20151207, end: 20151207
  2. TAXOL [Concomitant]
     Active Substance: PACLITAXEL
  3. TAXOTERE [Suspect]
     Active Substance: DOCETAXEL
     Indication: BREAST CANCER FEMALE
     Dosage: 1 MG, QW
     Route: 042
     Dates: start: 20151130, end: 20151130
  4. DOXORUBICIN [Concomitant]
     Active Substance: DOXORUBICIN
  5. PARAPLATIN [Concomitant]
     Active Substance: CARBOPLATIN

REACTIONS (2)
  - Alopecia [Recovering/Resolving]
  - Psychological trauma [Unknown]

NARRATIVE: CASE EVENT DATE: 201606
